FAERS Safety Report 7054121-8 (Version None)
Quarter: 2010Q4

REPORT INFORMATION
  Report Type: 
  Country: None (occurrence: None)
  Receive Date: 20101020
  Receipt Date: 20101018
  Transmission Date: 20110411
  Serious: Yes (Other)
  Sender: FDA-Public Use
  Company Number: CH-WYE-G06831410

PATIENT
  Age: 58 Year
  Sex: Female

DRUGS (1)
  1. TORISEL [Suspect]
     Indication: METASTATIC RENAL CELL CARCINOMA
     Dosage: 25 MG FREQUENCY UNKNOWN
     Dates: start: 20090601, end: 20100301

REACTIONS (1)
  - DISEASE PROGRESSION [None]
